FAERS Safety Report 18258412 (Version 1)
Quarter: 2020Q3

REPORT INFORMATION
  Report Type: Other
  Country: US (occurrence: US)
  Receive Date: 20200911
  Receipt Date: 20200911
  Transmission Date: 20201103
  Serious: No
  Sender: FDA-Public Use
  Company Number: US-LEADIANT BIOSCIENCES INC-2019STPI000584

PATIENT

DRUGS (5)
  1. GLEOSTINE [Concomitant]
     Active Substance: LOMUSTINE
     Dosage: 40 MILLIGRAM
  2. GLEOSTINE [Concomitant]
     Active Substance: LOMUSTINE
     Dosage: 100 MILLIGRAM
  3. KEPPRA [Concomitant]
     Active Substance: LEVETIRACETAM
  4. GLEOSTINE [Concomitant]
     Active Substance: LOMUSTINE
     Dosage: 10 MILLIGRAM
  5. MATULANE [Suspect]
     Active Substance: PROCARBAZINE HYDROCHLORIDE
     Indication: BRAIN NEOPLASM MALIGNANT
     Dosage: 50 MILLIGRAM AS DIRECTED
     Route: 048
     Dates: start: 20190409

REACTIONS (1)
  - Paraesthesia [Unknown]

NARRATIVE: CASE EVENT DATE: 20191118
